FAERS Safety Report 9031384 (Version 3)
Quarter: 2016Q3

REPORT INFORMATION
  Report Type: Spontaneous
  Country: BR (occurrence: BR)
  Receive Date: 20130124
  Receipt Date: 20160905
  Transmission Date: 20161109
  Serious: Yes (Other)
  Sender: FDA-Public Use
  Company Number: BR-AMGEN-BRASP2013004883

PATIENT
  Age: 51 Year
  Sex: Female
  Weight: 66 kg

DRUGS (8)
  1. MERCAPTOPURINE. [Concomitant]
     Active Substance: MERCAPTOPURINE
     Dosage: 210 MG, 1X/DAY ( 6 35 MG)
  2. FOLIC ACID. [Concomitant]
     Active Substance: FOLIC ACID
     Dosage: 3 MG, UNK
  3. OMEPRAZOLE. [Concomitant]
     Active Substance: OMEPRAZOLE
     Dosage: 20 MG, 1X/DAY (1 TABLET A DAY)
  4. ENBREL [Suspect]
     Active Substance: ETANERCEPT
     Indication: RHEUMATOID ARTHRITIS
     Dosage: 25 MG, EVERY 10 DAYS
     Route: 058
     Dates: start: 200711
  5. HYDROCHLOROTHIAZIDE. [Concomitant]
     Active Substance: HYDROCHLOROTHIAZIDE
     Dosage: 30 MG, UNK
  6. SERTRALINE [Concomitant]
     Active Substance: SERTRALINE HYDROCHLORIDE
     Indication: STRESS
     Dosage: 50 MG, 1X/DAY 1 TABLET A DAY
     Dates: start: 2006
  7. RISEDROSS [Concomitant]
     Active Substance: RISEDRONATE SODIUM
     Dosage: 35 MG, WEEKLY (1 TABLETS A WEEK)
  8. PIASCLEDINE [Concomitant]
     Active Substance: AVOCADO OIL\SOYBEAN OIL
     Dosage: 300 MG, 1X/DAY 1 TABLET A DAY)

REACTIONS (8)
  - Syringe issue [Unknown]
  - Drug ineffective [Unknown]
  - Pneumonia [Unknown]
  - Hand deformity [Unknown]
  - Drug dose omission [Unknown]
  - Breast disorder [Unknown]
  - Osteoarthritis [Unknown]
  - Neck pain [Unknown]

NARRATIVE: CASE EVENT DATE: 2010
